FAERS Safety Report 5489660-4 (Version None)
Quarter: 2007Q4

REPORT INFORMATION
  Report Type: 
  Country: None (occurrence: None)
  Receive Date: 20071018
  Receipt Date: 20071015
  Transmission Date: 20080405
  Serious: Yes (Hospitalization)
  Sender: FDA-Public Use
  Company Number: B0491418A

PATIENT
  Age: 85 Year
  Sex: Female

DRUGS (6)
  1. COROPRES [Suspect]
     Indication: DRUG USE FOR UNKNOWN INDICATION
     Dosage: 6.25MG PER DAY
     Route: 048
     Dates: start: 20070124, end: 20070224
  2. ACOVIL [Suspect]
     Indication: DRUG USE FOR UNKNOWN INDICATION
     Dosage: 5MG PER DAY
     Route: 048
     Dates: start: 20070124, end: 20070224
  3. DIGOXIN [Suspect]
     Indication: DRUG USE FOR UNKNOWN INDICATION
     Route: 048
     Dates: start: 20070224
  4. SEGURIL [Concomitant]
  5. SINTROM [Concomitant]
  6. SERETIDE [Concomitant]
     Dates: start: 20070208

REACTIONS (2)
  - HYPOTENSION [None]
  - LOSS OF CONSCIOUSNESS [None]
